FAERS Safety Report 6554410-7 (Version None)
Quarter: 2010Q1

REPORT INFORMATION
  Report Type: 
  Country: None (occurrence: None)
  Receive Date: 20100127
  Receipt Date: 20100125
  Transmission Date: 20100710
  Serious: Yes (Other)
  Sender: FDA-Public Use
  Company Number: CHPA2010US01761

PATIENT
  Age: 31 Year
  Sex: Female
  Weight: 34.014 kg

DRUGS (2)
  1. BENEFIBER W/ WHEAT DEXTRIN (NCH) [Suspect]
     Indication: CONSTIPATION
     Dosage: 2 TSP, QD
     Route: 048
     Dates: start: 20100121, end: 20100124
  2. PHENOBARBITAL SRT [Concomitant]
     Dosage: 7MG, UNK

REACTIONS (2)
  - CONVULSION [None]
  - OFF LABEL USE [None]
